FAERS Safety Report 24139899 (Version 1)
Quarter: 2024Q3

REPORT INFORMATION
  Report Type: Report from Study
  Country: US (occurrence: US)
  Receive Date: 20240726
  Receipt Date: 20240726
  Transmission Date: 20241016
  Serious: Yes (Other)
  Sender: AUROBINDO
  Company Number: US-AUROBINDO-AUR-APL-2024-036349

PATIENT

DRUGS (6)
  1. NICARDIPINE [Suspect]
     Active Substance: NICARDIPINE
     Indication: Cardiac failure acute
     Dosage: UNK
     Route: 042
  2. NICARDIPINE [Suspect]
     Active Substance: NICARDIPINE
     Indication: Hypertensive crisis
  3. ESMOLOL [Concomitant]
     Active Substance: ESMOLOL HYDROCHLORIDE
     Indication: Cardiac failure acute
     Dosage: UNK
     Route: 065
  4. ESMOLOL [Concomitant]
     Active Substance: ESMOLOL HYDROCHLORIDE
     Indication: Hypertensive crisis
  5. DEXMEDETOMIDINE [Concomitant]
     Active Substance: DEXMEDETOMIDINE
     Indication: Cardiac failure acute
     Dosage: UNK
     Route: 065
  6. DEXMEDETOMIDINE [Concomitant]
     Active Substance: DEXMEDETOMIDINE
     Indication: Hypertensive crisis

REACTIONS (2)
  - Bradycardia [Unknown]
  - Hypotension [Unknown]
